FAERS Safety Report 18292123 (Version 2)
Quarter: 2022Q1

REPORT INFORMATION
  Report Type: Spontaneous
  Country: FR (occurrence: FR)
  Receive Date: 20200922
  Receipt Date: 20220307
  Transmission Date: 20220423
  Serious: Yes (Life-Threatening, Hospitalization)
  Sender: FDA-Public Use
  Company Number: FR-TEVA-2020-FR-1829598

PATIENT
  Age: 73 Year
  Sex: Male

DRUGS (21)
  1. CIPROFLOXACIN [Suspect]
     Active Substance: CIPROFLOXACIN
     Indication: Antibiotic therapy
     Dosage: CIPROFLOXACIN WAS CONTINUED AFTER DEVELOPMENT RESISTANCE TO MEROPENEM, AND LATER STOPPED
     Route: 065
  2. CIPROFLOXACIN [Suspect]
     Active Substance: CIPROFLOXACIN
     Indication: Aeromonas infection
  3. IDARUBICIN [Suspect]
     Active Substance: IDARUBICIN
     Indication: Chemotherapy
     Dosage: INDUCTION CHEMOTHERAPY
     Route: 065
  4. IDARUBICIN [Suspect]
     Active Substance: IDARUBICIN
     Indication: Acute myeloid leukaemia
     Dosage: CONSOLIDATION CHEMOTHERAPY COURSE
     Route: 065
  5. CYTARABINE [Suspect]
     Active Substance: CYTARABINE
     Indication: Chemotherapy
     Dosage: INDUCTION CHEMOTHERAPY
     Route: 065
  6. CYTARABINE [Suspect]
     Active Substance: CYTARABINE
     Indication: Acute myeloid leukaemia
     Dosage: CONSOLIDATION CHEMOTHERAPY COURSE
     Route: 065
  7. LOMUSTINE [Suspect]
     Active Substance: LOMUSTINE
     Indication: Chemotherapy
     Route: 065
  8. LOMUSTINE [Suspect]
     Active Substance: LOMUSTINE
     Indication: Acute myeloid leukaemia
  9. MEROPENEM [Suspect]
     Active Substance: MEROPENEM
     Indication: Evidence based treatment
     Route: 065
  10. MEROPENEM [Suspect]
     Active Substance: MEROPENEM
     Indication: Antibiotic therapy
  11. MEROPENEM [Suspect]
     Active Substance: MEROPENEM
     Indication: Aeromonas infection
  12. AZACITIDINE [Suspect]
     Active Substance: AZACITIDINE
     Indication: Chemotherapy
     Dosage: AZACYTIDINE 75 MG/M2 /DAY FOR A SEVEN-DAY PERIOD AND EVERY 28 DAYS; RECEIVED TOTAL 12 CYCLES
     Route: 065
  13. AZACITIDINE [Suspect]
     Active Substance: AZACITIDINE
     Indication: Acute myeloid leukaemia
  14. PIPERACILLIN SODIUM\TAZOBACTAM SODIUM [Concomitant]
     Active Substance: PIPERACILLIN SODIUM\TAZOBACTAM SODIUM
     Indication: Antibiotic therapy
     Dosage: PIPERACILLIN/TAZOBACTAM 4 G/500 MG FOUR TIMES A DAY (QID)
     Route: 065
  15. PIPERACILLIN SODIUM\TAZOBACTAM SODIUM [Concomitant]
     Active Substance: PIPERACILLIN SODIUM\TAZOBACTAM SODIUM
     Indication: Aeromonas infection
  16. VANCOMYCIN [Concomitant]
     Active Substance: VANCOMYCIN
     Indication: Antibiotic therapy
     Dosage: VANCOMYCIN WAS STARTED AGAIN AFTER ADR, AND LATER STOPPED
     Route: 050
  17. VANCOMYCIN [Concomitant]
     Active Substance: VANCOMYCIN
     Indication: Aeromonas infection
  18. AMIKACIN [Concomitant]
     Active Substance: AMIKACIN
     Indication: Antibiotic therapy
     Dosage: SINGLE DOSE
     Route: 065
  19. AMIKACIN [Concomitant]
     Active Substance: AMIKACIN
     Indication: Aeromonas infection
  20. CEFEPIME [Concomitant]
     Active Substance: CEFEPIME HYDROCHLORIDE
     Indication: Antibiotic therapy
     Route: 065
  21. CEFEPIME [Concomitant]
     Active Substance: CEFEPIME HYDROCHLORIDE
     Indication: Aeromonas infection

REACTIONS (6)
  - Necrotising fasciitis [Recovered/Resolved]
  - Aeromonas infection [Recovered/Resolved]
  - Pathogen resistance [Unknown]
  - Septic shock [Recovered/Resolved]
  - Abscess limb [Recovered/Resolved]
  - Abscess bacterial [Recovered/Resolved]
